FAERS Safety Report 9727742 (Version 1)
Quarter: 2013Q4

REPORT INFORMATION
  Report Type: Spontaneous
  Country: US (occurrence: US)
  Receive Date: 20131203
  Receipt Date: 20131203
  Transmission Date: 20140711
  Serious: No
  Sender: FDA-Public Use
  Company Number: US-ENDO PHARMACEUTICALS INC.-AMIT20120019

PATIENT
  Age: 71 Year
  Sex: Female

DRUGS (7)
  1. AMITRIPTYLINE HCL [Suspect]
     Indication: INSOMNIA
     Dosage: UNKNOWN
     Route: 048
     Dates: start: 201210
  2. LORAZEPAM TABLETS [Concomitant]
     Indication: PRODUCT USED FOR UNKNOWN INDICATION
     Dosage: UNKNOWN
     Route: 048
     Dates: start: 201210
  3. TOPROL XL [Concomitant]
     Indication: PRODUCT USED FOR UNKNOWN INDICATION
     Dosage: UNKNOWN
  4. LASIX [Concomitant]
     Indication: PRODUCT USED FOR UNKNOWN INDICATION
     Dosage: UNKNOWN
  5. CRESTOR [Concomitant]
     Indication: PRODUCT USED FOR UNKNOWN INDICATION
     Dosage: UNKNOWN
  6. LOTENSIN [Concomitant]
     Indication: PRODUCT USED FOR UNKNOWN INDICATION
     Dosage: UNKNOWN
  7. SYNTHROID [Concomitant]
     Indication: HYPOTHYROIDISM
     Dosage: UNKNOWN

REACTIONS (6)
  - Muscle disorder [Unknown]
  - Paraesthesia oral [Unknown]
  - Urinary retention [Unknown]
  - Dry mouth [Unknown]
  - Tinnitus [Unknown]
  - Drug ineffective for unapproved indication [Unknown]
